FAERS Safety Report 4615964-0 (Version None)
Quarter: 2005Q1

REPORT INFORMATION
  Report Type: 
  Country: None (occurrence: None)
  Receive Date: 20050318
  Receipt Date: 20050303
  Transmission Date: 20050727
  Serious: Yes (Hospitalization)
  Sender: FDA-Public Use
  Company Number: 1759

PATIENT
  Age: 69 Year
  Sex: Female

DRUGS (7)
  1. TARGRETIN [Suspect]
     Indication: MYCOSIS FUNGOIDES
     Dosage: 525 MG DAILY PO
     Route: 048
     Dates: start: 20041202, end: 20050206
  2. FENOFIBRATE [Concomitant]
  3. HYDRAZINE [Concomitant]
  4. IRON SULFATE/FOLIC ACID [Concomitant]
  5. LEVOTHYROXINE SODIUM [Concomitant]
  6. LORAZEPAM [Concomitant]
  7. PENTAMIDINE ISETHIONATE [Concomitant]

REACTIONS (3)
  - HYPEREOSINOPHILIC SYNDROME [None]
  - HYPERTRIGLYCERIDAEMIA [None]
  - LUNG DISORDER [None]
